FAERS Safety Report 13062499 (Version 1)
Quarter: 2016Q4

REPORT INFORMATION
  Report Type: Spontaneous
  Country: RU (occurrence: RU)
  Receive Date: 20161226
  Receipt Date: 20161226
  Transmission Date: 20170207
  Serious: Yes (Life-Threatening, Hospitalization)
  Sender: FDA-Public Use
  Company Number: RU-ASTRAZENECA-2016SF35504

PATIENT
  Age: 48 Year
  Sex: Male
  Weight: 70 kg

DRUGS (9)
  1. BRITOMAR [Concomitant]
     Active Substance: TORSEMIDE
  2. MONOCINQUE [Concomitant]
     Active Substance: ISOSORBIDE MONONITRATE
  3. PRESTARIUM [Concomitant]
     Active Substance: PERINDOPRIL
  4. CONCOR [Concomitant]
     Active Substance: BISOPROLOL FUMARATE
  5. CARDIOMAGNYL [Concomitant]
     Active Substance: ASPIRIN\MAGNESIUM HYDROXIDE
  6. OMACOR [Concomitant]
     Active Substance: OMEGA-3-ACID ETHYL ESTERS
     Dosage: EPA/DHA=1.2/1 - 90%
  7. ESPIRO [Concomitant]
  8. BRILINTA [Suspect]
     Active Substance: TICAGRELOR
     Indication: MYOCARDIAL INFARCTION
     Route: 048
     Dates: start: 201608
  9. ATORIS [Concomitant]
     Active Substance: ATORVASTATIN CALCIUM

REACTIONS (4)
  - Device occlusion [Not Recovered/Not Resolved]
  - Jaw cyst [Unknown]
  - Myocardial infarction [Unknown]
  - Concussion [Unknown]

NARRATIVE: CASE EVENT DATE: 201608
